FAERS Safety Report 8072724-9 (Version None)
Quarter: 2012Q1

REPORT INFORMATION
  Report Type: 
  Country: None (occurrence: None)
  Receive Date: 20120126
  Receipt Date: 20120117
  Transmission Date: 20120608
  Serious: Yes (Other)
  Sender: FDA-Public Use
  Company Number: CHPA2012US001520

PATIENT
  Age: 24 Year
  Sex: Female

DRUGS (4)
  1. PAXIL [Suspect]
     Dosage: UNK, UNK
     Route: 048
  2. EXCEDRIN (MIGRAINE) [Suspect]
     Indication: MIGRAINE
     Dosage: 2 DF, PRN
     Route: 048
     Dates: start: 20100101, end: 20120116
  3. PERCOCET [Suspect]
     Dosage: UNK, UNK
  4. ANTIBIOTICS [Suspect]
     Indication: INFECTION
     Dosage: UNK, UNK

REACTIONS (3)
  - INTERVERTEBRAL DISC PROTRUSION [None]
  - EPISTAXIS [None]
  - POSTOPERATIVE WOUND INFECTION [None]
